FAERS Safety Report 8943284 (Version 3)
Quarter: 2013Q1

REPORT INFORMATION
  Report Type: Spontaneous
  Country: US (occurrence: US)
  Receive Date: 20121204
  Receipt Date: 20130131
  Transmission Date: 20140127
  Serious: Yes (Other)
  Sender: FDA-Public Use
  Company Number: US-AMGEN-USASP2012077006

PATIENT
  Age: 71 Year
  Sex: Female
  Weight: 107.4 kg

DRUGS (17)
  1. NPLATE [Suspect]
     Indication: IDIOPATHIC THROMBOCYTOPENIC PURPURA
     Dosage: 5 MUG/KG, UNK
     Route: 058
     Dates: start: 20121126
  2. NPLATE [Suspect]
  3. CALCIUM WITH VITAMIN D3 [Concomitant]
     Dosage: 1 DF, QD
     Route: 048
  4. CELEXA                             /00582602/ [Concomitant]
     Dosage: 20 MG, BID
     Route: 048
  5. XALATAN [Concomitant]
     Dosage: 1 DF, QHS
     Route: 047
  6. SYNTHROID [Concomitant]
     Dosage: 88 MUG, QD
     Route: 048
  7. GLUCOPHAGE [Concomitant]
     Dosage: 500 MG, QD
     Route: 048
  8. MULTIVITAMIN                       /00097801/ [Concomitant]
     Dosage: 1 DF, QD
     Route: 048
  9. PRILOSEC                           /00661201/ [Concomitant]
     Dosage: 20 MG, BID
     Route: 048
  10. KLOR-CON [Concomitant]
  11. MIRAPEX [Concomitant]
     Dosage: 0.125 MG, QD
     Route: 048
  12. QUINAPRIL/HYDROCHLOORTHIAZIDE HEXAL [Concomitant]
     Dosage: 20-25 MG, BID
     Route: 048
  13. ZOCOR [Concomitant]
     Dosage: 10 MG, QD
     Route: 048
  14. RITUXAN [Concomitant]
     Dosage: UNK
     Route: 042
     Dates: start: 20121018
  15. DEXAMETHASONE [Concomitant]
     Dosage: 40 MG, UNK
     Route: 048
     Dates: start: 20121003
  16. IMMUNOGLOBULIN                     /00025201/ [Concomitant]
     Dosage: 1000 MG/KG, UNK
     Route: 042
     Dates: start: 20121010
  17. PREDNISONE [Concomitant]
     Dosage: ONE 50MG AND THREE 10 MG, QD
     Route: 048

REACTIONS (1)
  - Platelet count decreased [Not Recovered/Not Resolved]
